FAERS Safety Report 6243363-7 (Version None)
Quarter: 2009Q2

REPORT INFORMATION
  Report Type: 
  Country: None (occurrence: None)
  Receive Date: 20090622
  Receipt Date: 20090622
  Transmission Date: 20091009
  Serious: No
  Sender: FDA-Public Use
  Company Number: None

PATIENT
  Age: 54 Year
  Sex: Female
  Weight: 83.9154 kg

DRUGS (2)
  1. ZICAM [Suspect]
     Indication: NASOPHARYNGITIS
     Dates: start: 20081214, end: 20081218
  2. ZICAM [Suspect]
     Indication: PROPHYLAXIS
     Dates: start: 20081214, end: 20081218

REACTIONS (1)
  - ANOSMIA [None]
